FAERS Safety Report 6393847-6 (Version None)
Quarter: 2009Q4

REPORT INFORMATION
  Report Type: 
  Country: None (occurrence: None)
  Receive Date: 20091008
  Receipt Date: 20090813
  Transmission Date: 20100525
  Serious: No
  Sender: FDA-Public Use
  Company Number: US-BAYER-200930507NA

PATIENT
  Age: 35 Year
  Sex: Male

DRUGS (1)
  1. BETASERON [Suspect]
     Indication: DRUG USE FOR UNKNOWN INDICATION
     Dosage: UNK
     Route: 058
     Dates: start: 20090721, end: 20090812

REACTIONS (1)
  - INJECTION SITE MASS [None]
